FAERS Safety Report 10050048 (Version 1)
Quarter: 2014Q1

REPORT INFORMATION
  Report Type: Spontaneous
  Country: US (occurrence: None)
  Receive Date: 20140331
  Receipt Date: 20140331
  Transmission Date: 20141002
  Serious: Yes (Disabling)
  Sender: FDA-Public Use
  Company Number: None

PATIENT
  Age: 44 Year
  Sex: Female

DRUGS (1)
  1. CIPROFLOXACIN HCL [Suspect]
     Indication: KIDNEY INFECTION
     Dosage: 1 PILL, TWICE DAILY, TAKEN BY MOUTH.
     Dates: start: 20140323, end: 20140328

REACTIONS (4)
  - Arthralgia [None]
  - Neck pain [None]
  - Toothache [None]
  - Myalgia [None]
